FAERS Safety Report 6969777-5 (Version None)
Quarter: 2010Q3

REPORT INFORMATION
  Report Type: 
  Country: None (occurrence: None)
  Receive Date: 20100908
  Receipt Date: 20100830
  Transmission Date: 20110219
  Serious: No
  Sender: FDA-Public Use
  Company Number: US-BIOGENIDEC-2010BI030308

PATIENT
  Age: 77 Year
  Sex: Female

DRUGS (1)
  1. TYSABRI [Suspect]
     Indication: MULTIPLE SCLEROSIS
     Route: 042
     Dates: start: 20080415

REACTIONS (4)
  - MUSCLE SPASTICITY [None]
  - MUSCULAR WEAKNESS [None]
  - PRURITUS [None]
  - RASH [None]
